FAERS Safety Report 7463440-2 (Version None)
Quarter: 2011Q2

REPORT INFORMATION
  Report Type: 
  Country: None (occurrence: None)
  Receive Date: 20110506
  Receipt Date: 20110429
  Transmission Date: 20111010
  Serious: Yes (Other)
  Sender: FDA-Public Use
  Company Number: B0716953A

PATIENT
  Age: 16 Year
  Sex: Male
  Weight: 50.1 kg

DRUGS (9)
  1. ADVAIR DISKUS 100/50 [Suspect]
     Route: 055
     Dates: start: 20090706
  2. UNKNOWN [Concomitant]
     Route: 061
  3. ATROVENT [Concomitant]
     Route: 055
     Dates: start: 20110105, end: 20110329
  4. ADVAIR DISKUS 100/50 [Suspect]
     Route: 055
     Dates: start: 20070917
  5. ADVAIR DISKUS 100/50 [Suspect]
     Route: 055
     Dates: start: 20110105
  6. ADVAIR DISKUS 100/50 [Suspect]
     Route: 055
     Dates: start: 20080214
  7. UNKNOWN [Concomitant]
     Route: 061
     Dates: start: 20060617
  8. EPIPEN [Concomitant]
     Dates: start: 20100311
  9. ALBUTEROL SULFATE AUTOHALER [Concomitant]
     Route: 055
     Dates: start: 20100311

REACTIONS (1)
  - ACTH STIMULATION TEST ABNORMAL [None]
